FAERS Safety Report 9508588 (Version 3)
Quarter: 2014Q4

REPORT INFORMATION
  Report Type: Report from Study
  Country: US (occurrence: US)
  Receive Date: 20130909
  Receipt Date: 20141015
  Transmission Date: 20150529
  Serious: Yes (Hospitalization, Other)
  Sender: FDA-Public Use
  Company Number: US-ACTELION-A-NJ2013-87901

PATIENT
  Age: 75 Year
  Sex: Female

DRUGS (11)
  1. ADCIRCA [Concomitant]
     Active Substance: TADALAFIL
     Dosage: 20 MG, QD
  2. HYDROCODONE [Concomitant]
     Active Substance: HYDROCODONE
     Dosage: 5/325 MG PRN
  3. DILTIAZEM [Concomitant]
     Active Substance: DILTIAZEM
     Dosage: 180 MG, QD
  4. FENTANYL. [Concomitant]
     Active Substance: FENTANYL
     Dosage: 50 MG, QD
  5. LEVOTHYROXINE [Concomitant]
     Active Substance: LEVOTHYROXINE
     Dosage: 0.025 MG, QD
  6. ADVAIR HFA [Concomitant]
     Active Substance: FLUTICASONE PROPIONATE\SALMETEROL XINAFOATE
     Dosage: 250/50 MG, BID
  7. DIOVAN [Concomitant]
     Active Substance: VALSARTAN
     Dosage: 160/12.5 MG, QD
  8. ZOFRAN [Concomitant]
     Active Substance: ONDANSETRON HYDROCHLORIDE
     Dosage: 8 MG, PRN
  9. VITAMIN D [Concomitant]
     Active Substance: CHOLECALCIFEROL
     Dosage: 2000 U, QD
  10. ASPIRIN. [Concomitant]
     Active Substance: ASPIRIN
     Dosage: 81 MG, QD
  11. TRACLEER [Suspect]
     Active Substance: BOSENTAN\BOSENTAN MONOHYDRATE
     Indication: PULMONARY HYPERTENSION
     Dosage: 62.5 MG, BID
     Route: 048
     Dates: start: 2008

REACTIONS (6)
  - Thyroid neoplasm [Unknown]
  - Myelodysplastic syndrome [Not Recovered/Not Resolved]
  - Transfusion [Recovering/Resolving]
  - Oedema peripheral [Not Recovered/Not Resolved]
  - Red blood cell count decreased [Not Recovered/Not Resolved]
  - Anaemia [Recovering/Resolving]

NARRATIVE: CASE EVENT DATE: 2008
